FAERS Safety Report 7819589-5 (Version None)
Quarter: 2011Q4

REPORT INFORMATION
  Report Type: 
  Country: None (occurrence: None)
  Receive Date: 20111018
  Receipt Date: 20111018
  Transmission Date: 20120403
  Serious: Yes (Hospitalization)
  Sender: FDA-Public Use
  Company Number: None

PATIENT
  Age: 35 Year
  Sex: Male
  Weight: 79.832 kg

DRUGS (1)
  1. INCIVEK [Suspect]

REACTIONS (3)
  - BLOOD COUNT ABNORMAL [None]
  - SYNCOPE [None]
  - FATIGUE [None]
